FAERS Safety Report 15209372 (Version 1)
Quarter: 2018Q3

REPORT INFORMATION
  Report Type: Spontaneous
  Country: DE (occurrence: DE)
  Receive Date: 20180727
  Receipt Date: 20180727
  Transmission Date: 20181010
  Serious: Yes (Other)
  Sender: FDA-Public Use
  Company Number: DE-BAUSCH-BL-2018-020113

PATIENT
  Age: 52 Year
  Sex: Female
  Weight: 53 kg

DRUGS (3)
  1. VENLAFAXINE [Suspect]
     Active Substance: VENLAFAXINE HYDROCHLORIDE
     Indication: DEPRESSION
     Route: 048
  2. DOMINAL (PROTHIPENDYL HYDROCHLORIDE) [Concomitant]
     Active Substance: PROTHIPENDYL HYDROCHLORIDE
     Indication: SLEEP DISORDER
     Route: 048
  3. LORAZEPAM. [Concomitant]
     Active Substance: LORAZEPAM
     Indication: RESTLESSNESS
     Route: 048

REACTIONS (5)
  - Aphthous ulcer [Recovered/Resolved]
  - Skin fissures [Recovered/Resolved]
  - Rash generalised [Recovered/Resolved]
  - Rash maculo-papular [Recovered/Resolved]
  - Skin maceration [Recovered/Resolved]

NARRATIVE: CASE EVENT DATE: 20180527
